FAERS Safety Report 15580586 (Version 2)
Quarter: 2020Q3

REPORT INFORMATION
  Report Type: Report from Study
  Country: US (occurrence: US)
  Receive Date: 20181102
  Receipt Date: 20181116
  Transmission Date: 20201105
  Serious: Yes (Death, Other)
  Sender: FDA-Public Use
  Company Number: US-ASTRAZENECA-2018SF24405

PATIENT
  Age: 62 Year
  Sex: Female
  Weight: 54 kg

DRUGS (10)
  1. GABAPENTIN. [Concomitant]
     Active Substance: GABAPENTIN
     Route: 048
  2. ZOFRAN [Concomitant]
     Active Substance: ONDANSETRON HYDROCHLORIDE
     Route: 048
  3. TREMELIMUMAB. [Suspect]
     Active Substance: TREMELIMUMAB
     Indication: HEPATOCELLULAR CARCINOMA
     Route: 042
     Dates: start: 20180802
  4. LISINOPRIL. [Concomitant]
     Active Substance: LISINOPRIL
     Route: 048
  5. AMBIEN [Concomitant]
     Active Substance: ZOLPIDEM TARTRATE
     Route: 048
  6. SYNTHROID [Concomitant]
     Active Substance: LEVOTHYROXINE SODIUM
     Route: 048
  7. LOVENOX [Concomitant]
     Active Substance: ENOXAPARIN SODIUM
     Route: 048
  8. OXYCODONE [Concomitant]
     Active Substance: OXYCODONE
     Route: 048
  9. DURVALUMAB. [Suspect]
     Active Substance: DURVALUMAB
     Indication: HEPATOCELLULAR CARCINOMA
     Route: 042
     Dates: start: 20180802
  10. DOCUSATE/SENNA [Concomitant]
     Active Substance: DOCUSATE SODIUM\SENNA LEAF
     Dosage: 50MG/ 8.6MG 1?2 Q DAILY
     Route: 048

REACTIONS (8)
  - Alanine aminotransferase increased [Recovered/Resolved]
  - Encephalopathy [Recovered/Resolved]
  - Chronic kidney disease [Unknown]
  - Aspartate aminotransferase increased [Recovered/Resolved]
  - Respiratory failure [Fatal]
  - Pneumonitis [Unknown]
  - Thrombocytopenia [Unknown]
  - Blood bilirubin increased [Unknown]

NARRATIVE: CASE EVENT DATE: 20180902
